FAERS Safety Report 10900855 (Version 1)
Quarter: 2020Q3

REPORT INFORMATION
  Report Type: Report from Study
  Country: US (occurrence: US)
  Receive Date: 20150310
  Receipt Date: 20150310
  Transmission Date: 20201105
  Serious: Yes (Death, Other)
  Sender: FDA-Public Use
  Company Number: US-PFIZER INC-2015082360

PATIENT

DRUGS (2)
  1. IRINOTECAN HCL [Suspect]
     Active Substance: IRINOTECAN HYDROCHLORIDE
     Indication: COLORECTAL CANCER
     Dosage: 180 MG/M2, CYCLIC (ON DAYS 1 AND 15 OF EACH CYCLE)
     Route: 042
  2. SELUMETINIB. [Suspect]
     Active Substance: SELUMETINIB
     Indication: COLORECTAL CANCER
     Dosage: UNK, CYCLIC (2X/DAY FOR 28 DAYS CYCLE)
     Route: 048

REACTIONS (2)
  - Sepsis [Fatal]
  - Diarrhoea [Unknown]
